FAERS Safety Report 26144443 (Version 1)
Quarter: 2025Q4

REPORT INFORMATION
  Report Type: Spontaneous
  Country: US (occurrence: None)
  Receive Date: 20251211
  Receipt Date: 20251211
  Transmission Date: 20260118
  Serious: Yes (Hospitalization, Other)
  Sender: UCB
  Company Number: US-UCBSA-2025078121

PATIENT

DRUGS (1)
  1. CIMZIA [Suspect]
     Active Substance: CERTOLIZUMAB PEGOL
     Indication: Product used for unknown indication

REACTIONS (9)
  - Fistula [Unknown]
  - Impaired gastric emptying [Unknown]
  - Illness [Unknown]
  - Weight decreased [Unknown]
  - Lymphocytic oesophagitis [Unknown]
  - Abdominal pain [Unknown]
  - Drug hypersensitivity [Unknown]
  - Injection site pain [Unknown]
  - Irritable bowel syndrome [Unknown]
